FAERS Safety Report 17864349 (Version 2)
Quarter: 2020Q2

REPORT INFORMATION
  Report Type: Spontaneous
  Country: GR (occurrence: GR)
  Receive Date: 20200605
  Receipt Date: 20200615
  Transmission Date: 20200714
  Serious: Yes (Other)
  Sender: FDA-Public Use
  Company Number: GR-PFIZER INC-2020216132

PATIENT
  Age: 74 Year
  Sex: Female

DRUGS (4)
  1. AZATHIOPRINE. [Suspect]
     Active Substance: AZATHIOPRINE
     Indication: PEMPHIGOID
     Dosage: 100 MG, 1X/DAY
  2. AZATHIOPRINE. [Suspect]
     Active Substance: AZATHIOPRINE
     Dosage: 50 MG, 1X/DAY
  3. PREDNISOLONE. [Suspect]
     Active Substance: PREDNISOLONE
     Indication: PEMPHIGOID
     Dosage: 60 MG, 1X/DAY (1 MG/KG BODY WEIGHT)
  4. METHYLPREDNISOLONE SODIUM SUCCINATE. [Suspect]
     Active Substance: METHYLPREDNISOLONE SODIUM SUCCINATE
     Indication: PEMPHIGOID
     Dosage: UNK
     Route: 040

REACTIONS (6)
  - Pancytopenia [Recovered/Resolved]
  - Drug reaction with eosinophilia and systemic symptoms [Recovering/Resolving]
  - Haemodynamic instability [Recovered/Resolved]
  - Muscular weakness [Recovering/Resolving]
  - Bone marrow failure [Recovered/Resolved]
  - Pyrexia [Recovered/Resolved]
